FAERS Safety Report 4589947-3 (Version None)
Quarter: 2005Q1

REPORT INFORMATION
  Report Type: 
  Country: None (occurrence: None)
  Receive Date: 20050125
  Receipt Date: 20040920
  Transmission Date: 20050727
  Serious: No
  Sender: FDA-Public Use
  Company Number: USA040671049

PATIENT
  Age: 86 Year
  Sex: Female

DRUGS (6)
  1. FORTEO [Suspect]
     Indication: OSTEOPOROSIS
     Dates: start: 20040401
  2. NORVASC [Concomitant]
  3. LANOXIN [Concomitant]
  4. MECLIZINE [Concomitant]
  5. ULTRAM [Concomitant]
  6. ADVIL [Concomitant]

REACTIONS (3)
  - HERNIA [None]
  - NAUSEA [None]
  - VOMITING [None]
